FAERS Safety Report 23004538 (Version 2)
Quarter: 2023Q4

REPORT INFORMATION
  Report Type: Report from Study
  Country: KR (occurrence: None)
  Receive Date: 20230928
  Receipt Date: 20231002
  Transmission Date: 20240109
  Serious: Yes (Hospitalization)
  Sender: FDA-Public Use
  Company Number: KR-Eisai Medical Research-EC-2023-149567

PATIENT
  Age: 57 Year
  Sex: Male
  Weight: 63 kg

DRUGS (19)
  1. LENVATINIB [Suspect]
     Active Substance: LENVATINIB
     Indication: Squamous cell carcinoma of head and neck
     Route: 048
     Dates: start: 20230907, end: 20230919
  2. URSODIOL [Concomitant]
     Active Substance: URSODIOL
     Dates: start: 200801
  3. PROPRANOLOL HYDROCHLORIDE [Concomitant]
     Active Substance: PROPRANOLOL HYDROCHLORIDE
     Dates: start: 200801
  4. EZETIMIBE\ROSUVASTATIN [Concomitant]
     Active Substance: EZETIMIBE\ROSUVASTATIN
     Dates: start: 201801
  5. CODEINE [Concomitant]
     Active Substance: CODEINE
     Dates: start: 20230411
  6. SURFOLASE [Concomitant]
     Dates: start: 20221121
  7. MEGACE F [Concomitant]
     Dates: start: 20230614
  8. ULTRACET [Concomitant]
     Active Substance: ACETAMINOPHEN\TRAMADOL HYDROCHLORIDE
     Dates: start: 20230731
  9. MYPOL [CODEINE PHOSPHATE;IBUPROFEN;PARACETAMOL] [Concomitant]
     Dates: start: 20230830, end: 20230906
  10. OXYCODONE HYDROCHLORIDE [Concomitant]
     Active Substance: OXYCODONE HYDROCHLORIDE
     Dates: start: 20230830
  11. NEWDOTOP [Concomitant]
     Dates: start: 20230830, end: 20230912
  12. TANTUM [BENZYDAMINE HYDROCHLORIDE] [Concomitant]
     Dates: start: 20221122
  13. MUCOMYST [Concomitant]
     Active Substance: ACETYLCYSTEINE
     Dates: start: 20230215
  14. NALOXONE HYDROCHLORIDE\OXYCODONE HYDROCHLORIDE [Concomitant]
     Active Substance: NALOXONE HYDROCHLORIDE\OXYCODONE HYDROCHLORIDE
     Dates: start: 20230823
  15. LOPAINE [Concomitant]
     Dates: start: 20230907
  16. GODEX [Concomitant]
     Dates: start: 20230813
  17. KEROMIN [Concomitant]
     Dates: start: 20230913, end: 20230913
  18. MORPHINE SULFATE [Concomitant]
     Active Substance: MORPHINE SULFATE
     Dates: start: 20230913, end: 20230913
  19. RABEPRAZOLE SODIUM;SODIUM BICARBONATE [Concomitant]
     Dates: start: 201801

REACTIONS (1)
  - Fistula [Not Recovered/Not Resolved]

NARRATIVE: CASE EVENT DATE: 20230920
